FAERS Safety Report 12115411 (Version 1)
Quarter: 2016Q1

REPORT INFORMATION
  Report Type: Report from Study
  Country: CA (occurrence: CA)
  Receive Date: 20160225
  Receipt Date: 20160225
  Transmission Date: 20160526
  Serious: Yes (Hospitalization)
  Sender: FDA-Public Use
  Company Number: CA-SANOFI-AVENTIS-2010SA077699

PATIENT
  Age: 56 Year
  Sex: Female
  Weight: 58.4 kg

DRUGS (3)
  1. TERIFLUNOMIDE [Suspect]
     Active Substance: TERIFLUNOMIDE
     Indication: MULTIPLE SCLEROSIS RELAPSE
     Route: 048
     Dates: start: 20080214, end: 20110302
  2. DETROL [Concomitant]
     Active Substance: TOLTERODINE TARTRATE
     Indication: BLADDER DISORDER
     Route: 048
     Dates: start: 20050926
  3. MELOXICAM. [Concomitant]
     Active Substance: MELOXICAM
     Indication: BACK DISORDER
     Route: 048
     Dates: start: 20080205

REACTIONS (6)
  - Pain [Recovered/Resolved]
  - Nausea [Recovered/Resolved]
  - Pyrexia [Recovered/Resolved]
  - Tubo-ovarian abscess [Recovered/Resolved]
  - Chills [Recovered/Resolved]
  - Perirectal abscess [Recovered/Resolved]

NARRATIVE: CASE EVENT DATE: 20101222
